FAERS Safety Report 6361435-3 (Version None)
Quarter: 2009Q3

REPORT INFORMATION
  Report Type: 
  Country: None (occurrence: None)
  Receive Date: 20090918
  Receipt Date: 20090909
  Transmission Date: 20100115
  Serious: Yes (Hospitalization)
  Sender: FDA-Public Use
  Company Number: JP-EISAI INC.-E3810-02992-SPO-JP

PATIENT
  Age: 65 Year
  Sex: Male

DRUGS (4)
  1. PARIET (RABEPRAZOLE) [Suspect]
     Route: 048
     Dates: start: 20090604, end: 20090617
  2. TAMSULOSIN HYDROCHLORIDE [Concomitant]
     Route: 048
     Dates: start: 20090604, end: 20090604
  3. GASMOTIN [Concomitant]
     Route: 048
     Dates: start: 20090604, end: 20090617
  4. MUCOSTA [Concomitant]
     Route: 048
     Dates: start: 20090604, end: 20090604

REACTIONS (3)
  - COUGH [None]
  - INTERSTITIAL LUNG DISEASE [None]
  - SPUTUM DISCOLOURED [None]
